FAERS Safety Report 23645519 (Version 2)
Quarter: 2024Q1

REPORT INFORMATION
  Report Type: Report from Study
  Country: FR (occurrence: FR)
  Receive Date: 20240319
  Receipt Date: 20240322
  Transmission Date: 20240409
  Serious: Yes (Other)
  Sender: FDA-Public Use
  Company Number: FR-CELLTRION INC.-2024FR005920

PATIENT

DRUGS (10)
  1. INFLIXIMAB-DYYB [Suspect]
     Active Substance: INFLIXIMAB-DYYB
     Indication: Ankylosing spondylitis
     Dosage: 400 MG, ONCE PER 6 WEEKS
     Route: 042
     Dates: start: 20230331, end: 20230331
  2. INFLIXIMAB-DYYB [Suspect]
     Active Substance: INFLIXIMAB-DYYB
     Dosage: 400 MG, ONCE PER 6 WEEKS
     Route: 042
     Dates: start: 20230512, end: 20230512
  3. INFLIXIMAB-DYYB [Suspect]
     Active Substance: INFLIXIMAB-DYYB
     Dosage: 400 MG AT 0, 2, 6 WEEKS, THEN EVERY 4 WEEKS, WEEK 0 DOSE AT HOSPITAL
     Route: 042
     Dates: start: 20230804, end: 20230804
  4. INFLIXIMAB-DYYB [Suspect]
     Active Substance: INFLIXIMAB-DYYB
     Dosage: 400 MG, ONCE PER 6 WEEKS
     Route: 042
     Dates: start: 20230915, end: 20230915
  5. INFLIXIMAB-DYYB [Suspect]
     Active Substance: INFLIXIMAB-DYYB
     Dosage: 400 MG, ONCE PER 6 WEEKS
     Route: 042
     Dates: start: 20231027, end: 20231027
  6. INFLIXIMAB-DYYB [Suspect]
     Active Substance: INFLIXIMAB-DYYB
     Dosage: 400 MG, ONCE PER 6 WEEKS
     Route: 042
     Dates: start: 20231208, end: 20231208
  7. INFLIXIMAB-DYYB [Suspect]
     Active Substance: INFLIXIMAB-DYYB
     Dosage: 500 MG ONCE PER 6 WEEKS
     Route: 042
     Dates: start: 20240119, end: 20240119
  8. INFLIXIMAB-DYYB [Suspect]
     Active Substance: INFLIXIMAB-DYYB
     Dosage: 500 MG ONCE PER 6 WEEKS
     Route: 042
     Dates: start: 20240301, end: 20240301
  9. DICLOFENAC SODIUM [Concomitant]
     Active Substance: DICLOFENAC\DICLOFENAC SODIUM
     Indication: Ankylosing spondylitis
     Dosage: 50 MG, AS PER NEED
     Route: 048
  10. ACETAMINOPHEN\CODEINE PHOSPHATE [Concomitant]
     Active Substance: ACETAMINOPHEN\CODEINE PHOSPHATE
     Indication: Ankylosing spondylitis
     Dosage: 500 MG, AS PER NEED
     Route: 048
     Dates: start: 20230804

REACTIONS (1)
  - Abortion spontaneous [Recovered/Resolved]

NARRATIVE: CASE EVENT DATE: 20240212
